FAERS Safety Report 4587459-4 (Version None)
Quarter: 2005Q1

REPORT INFORMATION
  Report Type: 
  Country: None (occurrence: None)
  Receive Date: 20050215
  Receipt Date: 20050202
  Transmission Date: 20050727
  Serious: Yes (Hospitalization)
  Sender: FDA-Public Use
  Company Number: 2005024838

PATIENT
  Age: 6 Year
  Sex: Male

DRUGS (1)
  1. GENOTROPIN [Suspect]
     Indication: FOETAL GROWTH RETARDATION
     Dosage: 0.9 MG (DAILY), UNKNOWN
     Route: 065
     Dates: start: 20040503

REACTIONS (1)
  - APPENDICECTOMY [None]
